FAERS Safety Report 21041402 (Version 9)
Quarter: 2023Q4

REPORT INFORMATION
  Report Type: Other
  Country: CA (occurrence: None)
  Receive Date: 20220705
  Receipt Date: 20231206
  Transmission Date: 20240109
  Serious: Yes (Other)
  Sender: FDA-Public Use
  Company Number: CA-ROCHE-2338523

PATIENT
  Age: 42 Year
  Sex: Female

DRUGS (26)
  1. OCREVUS [Suspect]
     Active Substance: OCRELIZUMAB
     Indication: Relapsing-remitting multiple sclerosis
     Dosage: 300 MG AT DAY 0 AND 14, THEN 600 MG EVERY 6 MONTH
     Route: 042
     Dates: start: 20190611
  2. OCREVUS [Suspect]
     Active Substance: OCRELIZUMAB
     Dosage: SUBSEQUENT DOSES OF OCRELIZUMAB: 07/JUL/2020, 20/JAN/2021, 18/AUG/2021, 25/FEB/2022, 28/NOV/2023
     Route: 042
  3. PAXLOVID [Suspect]
     Active Substance: NIRMATRELVIR\RITONAVIR
     Indication: COVID-19
     Route: 065
  4. BACLOFEN [Suspect]
     Active Substance: BACLOFEN
     Indication: Product used for unknown indication
     Route: 065
  5. ACETAMINOPHEN [Concomitant]
     Active Substance: ACETAMINOPHEN
     Indication: Premedication
     Route: 048
  6. BENADRYL [Concomitant]
     Active Substance: DIPHENHYDRAMINE HYDROCHLORIDE
     Indication: Premedication
     Route: 048
  7. METHYLPREDNISOLONE [Concomitant]
     Active Substance: METHYLPREDNISOLONE
     Indication: Premedication
     Route: 042
  8. METHYLPREDNISOLONE [Concomitant]
     Active Substance: METHYLPREDNISOLONE
     Route: 042
     Dates: start: 20210120
  9. CETIRIZINE HYDROCHLORIDE [Concomitant]
     Active Substance: CETIRIZINE HYDROCHLORIDE
     Indication: Premedication
     Route: 048
  10. CETIRIZINE HYDROCHLORIDE [Concomitant]
     Active Substance: CETIRIZINE HYDROCHLORIDE
     Indication: Hypersensitivity
  11. ZANTAC [Concomitant]
     Active Substance: RANITIDINE HYDROCHLORIDE
     Indication: Premedication
     Route: 048
  12. METFORMIN [Concomitant]
     Active Substance: METFORMIN HYDROCHLORIDE
     Indication: Diabetes mellitus
  13. SYNTHROID [Concomitant]
     Active Substance: LEVOTHYROXINE SODIUM
  14. BIOTIN [Concomitant]
     Active Substance: BIOTIN
     Indication: Alopecia
  15. CALCIUM [Concomitant]
     Active Substance: CALCIUM
  16. MIRABEGRON [Concomitant]
     Active Substance: MIRABEGRON
  17. VITAMIN B12 [Concomitant]
     Active Substance: CYANOCOBALAMIN
  18. OMEGA 3 [Concomitant]
     Active Substance: CAPSAICIN
  19. PANTOPRAZOLE [Concomitant]
     Active Substance: PANTOPRAZOLE
  20. CETIRIZINE [Concomitant]
     Active Substance: CETIRIZINE HYDROCHLORIDE
  21. OXYBUTYNIN [Concomitant]
     Active Substance: OXYBUTYNIN
  22. NUTRICAP [Concomitant]
  23. FAMOTIDINE [Concomitant]
     Active Substance: FAMOTIDINE
  24. NITROFURANTOIN [Concomitant]
     Active Substance: NITROFURANTOIN
     Indication: Urinary tract infection
  25. TOVIAZ [Concomitant]
     Active Substance: FESOTERODINE FUMARATE
  26. NORITATE [Concomitant]
     Active Substance: METRONIDAZOLE

REACTIONS (33)
  - Malignant melanoma [Not Recovered/Not Resolved]
  - Infusion related reaction [Recovered/Resolved]
  - Hypersensitivity [Not Recovered/Not Resolved]
  - Gingival pain [Not Recovered/Not Resolved]
  - Skin plaque [Recovered/Resolved]
  - Stress [Recovered/Resolved]
  - Alopecia [Not Recovered/Not Resolved]
  - Gingival bleeding [Not Recovered/Not Resolved]
  - Urinary tract infection [Recovering/Resolving]
  - Acne [Recovered/Resolved]
  - Urinary incontinence [Not Recovered/Not Resolved]
  - Gastrointestinal disorder [Not Recovered/Not Resolved]
  - Tinnitus [Not Recovered/Not Resolved]
  - COVID-19 [Not Recovered/Not Resolved]
  - Hypoaesthesia oral [Recovered/Resolved]
  - Taste disorder [Recovered/Resolved]
  - Rebound effect [Unknown]
  - Amnesia [Not Recovered/Not Resolved]
  - Disturbance in attention [Not Recovered/Not Resolved]
  - Hypoaesthesia [Not Recovered/Not Resolved]
  - Mole excision [Unknown]
  - Nasopharyngitis [Recovered/Resolved]
  - Wound [Recovering/Resolving]
  - Erythema [Recovering/Resolving]
  - Rash [Recovering/Resolving]
  - Alanine aminotransferase increased [Recovered/Resolved]
  - Gingival disorder [Not Recovered/Not Resolved]
  - Infusion related reaction [Recovered/Resolved]
  - Rosacea [Not Recovered/Not Resolved]
  - Abdominal pain upper [Recovered/Resolved]
  - Seasonal allergy [Not Recovered/Not Resolved]
  - Allergy to animal [Not Recovered/Not Resolved]
  - Infusion related reaction [Recovered/Resolved]

NARRATIVE: CASE EVENT DATE: 20190611
